FAERS Safety Report 9342327 (Version 5)
Quarter: 2013Q4

REPORT INFORMATION
  Report Type: Spontaneous
  Country: JP (occurrence: JP)
  Receive Date: 20130611
  Receipt Date: 20131017
  Transmission Date: 20140711
  Serious: Yes (Other)
  Sender: FDA-Public Use
  Company Number: JP-JNJFOC-20130416252

PATIENT
  Sex: Male

DRUGS (13)
  1. SIMPONI [Suspect]
     Indication: RHEUMATOID ARTHRITIS
     Route: 058
  2. SIMPONI [Suspect]
     Indication: RHEUMATOID ARTHRITIS
     Route: 058
     Dates: start: 20130523, end: 20130523
  3. ABATACEPT [Suspect]
     Indication: RHEUMATOID ARTHRITIS
     Route: 065
  4. ADALIMUMAB [Suspect]
     Indication: RHEUMATOID ARTHRITIS
     Route: 065
     Dates: start: 20110101
  5. ETANERCEPT [Suspect]
     Indication: RHEUMATOID ARTHRITIS
     Route: 065
     Dates: start: 20110101
  6. LOXONIN [Concomitant]
     Indication: RHEUMATOID ARTHRITIS
     Route: 048
  7. PREDONINE [Concomitant]
     Indication: RHEUMATOID ARTHRITIS
     Route: 048
  8. PREDONINE [Concomitant]
     Indication: RHEUMATOID ARTHRITIS
     Route: 048
  9. ALESION [Concomitant]
     Indication: RHINITIS
     Route: 048
  10. LEVOCETIRIZINE [Concomitant]
     Indication: RHINITIS
     Route: 048
  11. CELESTAMIN [Concomitant]
     Route: 048
  12. XYZAL [Concomitant]
     Indication: RHINITIS
     Route: 048
  13. BETAMETHASONE+D-CHLORPHENIRAMINE MALEATE [Concomitant]
     Indication: RHINITIS
     Route: 048

REACTIONS (7)
  - Lung neoplasm malignant [Unknown]
  - Rhinorrhoea [Unknown]
  - Skin exfoliation [Recovering/Resolving]
  - Pustular psoriasis [Recovering/Resolving]
  - Purulence [Recovering/Resolving]
  - Rash pruritic [Recovering/Resolving]
  - Abdominal pain [Unknown]
